FAERS Safety Report 13445019 (Version 3)
Quarter: 2018Q1

REPORT INFORMATION
  Report Type: Report from Study
  Country: US (occurrence: US)
  Receive Date: 20170414
  Receipt Date: 20180104
  Transmission Date: 20180508
  Serious: No
  Sender: FDA-Public Use
  Company Number: PHEH2017US010988

PATIENT

DRUGS (1)
  1. COSENTYX [Suspect]
     Active Substance: SECUKINUMAB
     Indication: PRODUCT USED FOR UNKNOWN INDICATION
     Dosage: UNK
     Route: 065
     Dates: start: 20150103

REACTIONS (5)
  - Depression [Unknown]
  - Psoriasis [Unknown]
  - Mood altered [Unknown]
  - Upper respiratory tract infection [Recovering/Resolving]
  - Hypersensitivity [Unknown]
